FAERS Safety Report 7721829-8 (Version None)
Quarter: 2011Q3

REPORT INFORMATION
  Report Type: 
  Country: None (occurrence: None)
  Receive Date: 20110831
  Receipt Date: 20110822
  Transmission Date: 20111222
  Serious: Yes (Disabling, Other)
  Sender: FDA-Public Use
  Company Number: US-MERCK-1103USA00980

PATIENT
  Age: 63 Year
  Sex: Male

DRUGS (1)
  1. FOSAMAX [Suspect]
     Indication: OSTEOPOROSIS
     Route: 065
     Dates: start: 19980301, end: 20080301

REACTIONS (18)
  - OSTEONECROSIS OF JAW [None]
  - STOMATITIS [None]
  - SWELLING [None]
  - JAW FRACTURE [None]
  - IMPAIRED HEALING [None]
  - BLOOD CHOLESTEROL INCREASED [None]
  - FISTULA DISCHARGE [None]
  - TOOTH INFECTION [None]
  - PAIN [None]
  - HYPERTENSION [None]
  - JAW DISORDER [None]
  - OSTEOMYELITIS [None]
  - OSTEONECROSIS [None]
  - TOOTH EXTRACTION [None]
  - HYPOAESTHESIA [None]
  - ABSCESS [None]
  - ORAL INFECTION [None]
  - TOOTH LOSS [None]
